FAERS Safety Report 7086915-7 (Version None)
Quarter: 2010Q4

REPORT INFORMATION
  Report Type: 
  Country: None (occurrence: None)
  Receive Date: 20101106
  Receipt Date: 20101030
  Transmission Date: 20110411
  Serious: No
  Sender: FDA-Public Use
  Company Number: US-WYE-H17294910

PATIENT
  Age: 47 Year
  Sex: Male
  Weight: 81.72 kg

DRUGS (5)
  1. ALAVERT [Suspect]
     Indication: SNEEZING
     Route: 048
     Dates: start: 20100827
  2. ALAVERT [Suspect]
     Indication: THROAT IRRITATION
  3. ALAVERT [Suspect]
     Indication: HYPERSENSITIVITY
  4. ALAVERT [Suspect]
     Indication: NASAL CONGESTION
  5. ALAVERT [Suspect]
     Indication: RHINORRHOEA

REACTIONS (1)
  - DRUG INEFFECTIVE [None]
